FAERS Safety Report 12853558 (Version 1)
Quarter: 2016Q4

REPORT INFORMATION
  Report Type: Spontaneous
  Country: US (occurrence: US)
  Receive Date: 20161017
  Receipt Date: 20161017
  Transmission Date: 20170207
  Serious: No
  Sender: FDA-Public Use
  Company Number: US-WEST-WARD PHARMACEUTICALS CORP.-US-H14001-16-00100

PATIENT
  Age: 61 Year
  Sex: Female

DRUGS (4)
  1. INFUMORPH [Suspect]
     Active Substance: MORPHINE SULFATE
     Route: 037
  2. INFUMORPH [Suspect]
     Active Substance: MORPHINE SULFATE
     Route: 037
  3. INFUMORPH [Suspect]
     Active Substance: MORPHINE SULFATE
     Route: 037
  4. INFUMORPH [Suspect]
     Active Substance: MORPHINE SULFATE
     Indication: PAIN
     Route: 037

REACTIONS (3)
  - Implant site discharge [Recovering/Resolving]
  - Mean cell volume increased [Unknown]
  - Neutrophil count increased [Unknown]

NARRATIVE: CASE EVENT DATE: 201511
